FAERS Safety Report 10201096 (Version 2)
Quarter: 2014Q2

REPORT INFORMATION
  Report Type: Spontaneous
  Country: US (occurrence: US)
  Receive Date: 20140528
  Receipt Date: 20140528
  Transmission Date: 20141212
  Serious: Yes (Other)
  Sender: FDA-Public Use
  Company Number: US-US-EMD SERONO, INC.-235976J08USA

PATIENT
  Sex: Female

DRUGS (3)
  1. REBIF [Suspect]
     Indication: MULTIPLE SCLEROSIS
     Route: 058
     Dates: start: 20080415
  2. REBIF [Suspect]
     Route: 058
     Dates: start: 200805
  3. ZOLOFT [Concomitant]
     Indication: DEPRESSION
     Dates: start: 2008

REACTIONS (1)
  - Actinic keratosis [Not Recovered/Not Resolved]
